FAERS Safety Report 7098214-8 (Version None)
Quarter: 2010Q4

REPORT INFORMATION
  Report Type: 
  Country: None (occurrence: None)
  Receive Date: 20101112
  Receipt Date: 20091020
  Transmission Date: 20110411
  Serious: No
  Sender: FDA-Public Use
  Company Number: US-KINGPHARMUSA00001-K200901318

PATIENT
  Sex: Female

DRUGS (1)
  1. ALTACE [Suspect]
     Dosage: UNK

REACTIONS (1)
  - ALOPECIA [None]
